FAERS Safety Report 15058922 (Version 1)
Quarter: 2018Q2

REPORT INFORMATION
  Report Type: Spontaneous
  Country: CR (occurrence: CR)
  Receive Date: 20180625
  Receipt Date: 20180625
  Transmission Date: 20180711
  Serious: Yes (Life-Threatening, Disabling)
  Sender: FDA-Public Use
  Company Number: CR-GLAXOSMITHKLINE-CR2018GSK112367

PATIENT

DRUGS (1)
  1. LAMICTAL [Suspect]
     Active Substance: LAMOTRIGINE
     Indication: PRODUCT USED FOR UNKNOWN INDICATION
     Dosage: UNK

REACTIONS (4)
  - Stomatitis [Recovered/Resolved]
  - Nasal inflammation [Recovered/Resolved]
  - Balanoposthitis [Recovered/Resolved]
  - Anal inflammation [Recovered/Resolved]
